FAERS Safety Report 8932477 (Version 1)
Quarter: 2012Q4

REPORT INFORMATION
  Report Type: Spontaneous
  Country: IN (occurrence: None)
  Receive Date: 20121120
  Receipt Date: 20121120
  Transmission Date: 20130627
  Serious: Yes (Hospitalization, Disabling, Other)
  Sender: FDA-Public Use
  Company Number: 2012P1064986

PATIENT
  Age: 12 Year
  Sex: Female

DRUGS (2)
  1. RISPERIDONE [Suspect]
     Indication: BEHAVIOR DISORDER
  2. TRIHEXYPHENYDYL [Concomitant]

REACTIONS (6)
  - Hypophagia [None]
  - Torticollis [None]
  - Muscle rigidity [None]
  - Tremor [None]
  - Bradykinesia [None]
  - Speech disorder [None]
